FAERS Safety Report 17922992 (Version 3)
Quarter: 2021Q1

REPORT INFORMATION
  Report Type: Spontaneous
  Country: US (occurrence: US)
  Receive Date: 20200622
  Receipt Date: 20210106
  Transmission Date: 20210419
  Serious: Yes (Other)
  Sender: FDA-Public Use
  Company Number: US-GLENMARK PHARMACEUTICALS-2020GMK047672

PATIENT

DRUGS (2)
  1. IMIQUIMOD CREAM USP, 5% [Suspect]
     Active Substance: IMIQUIMOD
     Indication: EAR NEOPLASM MALIGNANT
     Dosage: UNK
     Route: 065
     Dates: start: 2019, end: 20200421
  2. IMIQUIMOD CREAM USP, 5% [Suspect]
     Active Substance: IMIQUIMOD
     Dosage: UNK (COMPLAINT BATCH)
     Route: 065
     Dates: start: 2020, end: 20200421

REACTIONS (7)
  - Product dose omission issue [Unknown]
  - Product quality issue [Unknown]
  - Condition aggravated [Unknown]
  - Ear neoplasm malignant [Unknown]
  - Drug ineffective for unapproved indication [Unknown]
  - Inappropriate schedule of product administration [Unknown]
  - Product packaging quantity issue [Unknown]

NARRATIVE: CASE EVENT DATE: 2020
